FAERS Safety Report 5745381-1 (Version None)
Quarter: 2008Q2

REPORT INFORMATION
  Report Type: 
  Country: None (occurrence: None)
  Receive Date: 20080521
  Receipt Date: 20080514
  Transmission Date: 20081010
  Serious: Yes (Hospitalization)
  Sender: FDA-Public Use
  Company Number: GB-TEVA-171660ISR

PATIENT
  Age: 80 Year
  Sex: Female

DRUGS (2)
  1. TRIMETHOPRIM [Suspect]
     Dates: start: 20080408, end: 20080422
  2. LOSARTAN POTASSIUM [Suspect]
     Dates: start: 20080429

REACTIONS (2)
  - HYPERKALAEMIA [None]
  - RENAL TUBULAR ACIDOSIS [None]
